FAERS Safety Report 8308627-1 (Version None)
Quarter: 2012Q2

REPORT INFORMATION
  Report Type: 
  Country: None (occurrence: None)
  Receive Date: 20120424
  Receipt Date: 19900312
  Transmission Date: 20120825
  Serious: Yes (Hospitalization, Other)
  Sender: FDA-Public Use
  Company Number: FR-ROCHE-13071

PATIENT
  Sex: Female

DRUGS (1)
  1. NAPROXEN [Suspect]
     Indication: OSTEOARTHRITIS
     Route: 048

REACTIONS (5)
  - THROMBOCYTOPENIA [None]
  - AGRANULOCYTOSIS [None]
  - PURPURA [None]
  - PLATELET COUNT DECREASED [None]
  - BONE MARROW FAILURE [None]
